FAERS Safety Report 4334097-4 (Version None)
Quarter: 2004Q2

REPORT INFORMATION
  Report Type: 
  Country: None (occurrence: None)
  Receive Date: 20040402
  Receipt Date: 20030623
  Transmission Date: 20050107
  Serious: Yes (Death, Hospitalization)
  Sender: FDA-Public Use
  Company Number: EMADSS2003002740

PATIENT
  Age: 67 Year
  Sex: Male

DRUGS (1)
  1. SPORANOX [Suspect]
     Indication: CANDIDIASIS
     Dosage: 200 DOSE(S), ORAL
     Route: 048

REACTIONS (3)
  - COMA HEPATIC [None]
  - HEPATIC FAILURE [None]
  - HEPATITIS ACUTE [None]
